FAERS Safety Report 4562054-1 (Version None)
Quarter: 2005Q1

REPORT INFORMATION
  Report Type: 
  Country: None (occurrence: None)
  Receive Date: 20050125
  Receipt Date: 20050111
  Transmission Date: 20050727
  Serious: Yes (Other)
  Sender: FDA-Public Use
  Company Number: 2005-0007914

PATIENT
  Age: 34 Year
  Sex: Male
  Weight: 73 kg

DRUGS (4)
  1. VIREAD [Suspect]
     Indication: HIV INFECTION
     Dosage: 300 MG, ORAL
     Route: 048
     Dates: start: 20040501
  2. DDI (DIDANOSINE) [Concomitant]
  3. LAMIVUDINE [Concomitant]
  4. KALETRA [Concomitant]

REACTIONS (5)
  - BLOOD CREATININE INCREASED [None]
  - DIABETES INSIPIDUS [None]
  - POLYURIA [None]
  - PROTEINURIA [None]
  - WEIGHT DECREASED [None]
